FAERS Safety Report 9552343 (Version 1)
Quarter: 2013Q3

REPORT INFORMATION
  Report Type: Spontaneous
  Country: US (occurrence: None)
  Receive Date: 20130923
  Receipt Date: 20130923
  Transmission Date: 20140515
  Serious: Yes (Hospitalization)
  Sender: FDA-Public Use
  Company Number: 2013-US-000698

PATIENT
  Age: 42 Year
  Sex: Female

DRUGS (2)
  1. XYREM [Suspect]
     Indication: NARCOLEPSY
     Route: 048
     Dates: start: 20050420
  2. FIORICET [Suspect]
     Indication: HEADACHE

REACTIONS (3)
  - Cellulitis [None]
  - Headache [None]
  - Drug ineffective [None]
